FAERS Safety Report 25013840 (Version 1)
Quarter: 2025Q1

REPORT INFORMATION
  Report Type: Spontaneous
  Country: BR (occurrence: BR)
  Receive Date: 20250226
  Receipt Date: 20250226
  Transmission Date: 20250409
  Serious: Yes (Other)
  Sender: Harrow Health
  Company Number: BR-IMP-2025000140

PATIENT
  Age: 68 Year
  Sex: Female

DRUGS (1)
  1. MAXIDEX [Suspect]
     Active Substance: DEXAMETHASONE
     Indication: Product used for unknown indication
     Route: 065

REACTIONS (4)
  - Blindness [Unknown]
  - Malaise [Unknown]
  - Swelling face [Not Recovered/Not Resolved]
  - Vitreous floaters [Not Recovered/Not Resolved]
